FAERS Safety Report 8136368-2 (Version None)
Quarter: 2012Q1

REPORT INFORMATION
  Report Type: 
  Country: None (occurrence: None)
  Receive Date: 20120214
  Receipt Date: 20120208
  Transmission Date: 20120608
  Serious: No
  Sender: FDA-Public Use
  Company Number: US-PFIZER INC-2012018545

PATIENT
  Sex: Female
  Weight: 54 kg

DRUGS (6)
  1. PROVERA [Suspect]
     Dosage: 2.5 MG, 1X/DAY
     Route: 048
     Dates: start: 19920101
  2. FUROMEX [Concomitant]
     Dosage: UNK
  3. XANAX [Concomitant]
     Dosage: UNK
  4. PREMARIN [Suspect]
     Indication: MENOPAUSE
     Dosage: 1.25 MG, 1X/DAY
     Route: 048
     Dates: start: 20020801
  5. ACETYLSALICYLIC ACID [Concomitant]
     Indication: HEADACHE
     Dosage: UNK
  6. ACETYLSALICYLIC ACID [Concomitant]
     Indication: SINUS DISORDER

REACTIONS (1)
  - INSOMNIA [None]
